FAERS Safety Report 22808984 (Version 2)
Quarter: 2024Q1

REPORT INFORMATION
  Report Type: Spontaneous
  Country: JP (occurrence: JP)
  Receive Date: 20230810
  Receipt Date: 20240101
  Transmission Date: 20240409
  Serious: Yes (Death)
  Sender: FDA-Public Use
  Company Number: JP-JNJFOC-20230821298

PATIENT
  Age: 50 Year
  Sex: Female
  Weight: 43.8 kg

DRUGS (26)
  1. UPTRAVI [Suspect]
     Active Substance: SELEXIPAG
     Indication: Pulmonary arterial hypertension
     Route: 048
     Dates: start: 20170131, end: 20170216
  2. UPTRAVI [Suspect]
     Active Substance: SELEXIPAG
     Route: 048
     Dates: start: 20170217, end: 20170302
  3. UPTRAVI [Suspect]
     Active Substance: SELEXIPAG
     Route: 048
     Dates: start: 20170303, end: 20201108
  4. BISOPROLOL [Concomitant]
     Active Substance: BISOPROLOL\BISOPROLOL FUMARATE
     Indication: Arrhythmia
  5. VERAPAMIL HYDROCHLORIDE [Concomitant]
     Active Substance: VERAPAMIL HYDROCHLORIDE
  6. LASIX [Concomitant]
     Active Substance: FUROSEMIDE
  7. SPIRONOLACTONE [Concomitant]
     Active Substance: SPIRONOLACTONE
     Dates: end: 20170216
  8. NICORANDIL [Concomitant]
     Active Substance: NICORANDIL
     Indication: Arrhythmia
  9. BEPRIDIL [Concomitant]
     Active Substance: BEPRIDIL
     Indication: Arrhythmia
  10. OPALMON [Concomitant]
     Active Substance: LIMAPROST
  11. TRAMCET [Concomitant]
     Active Substance: ACETAMINOPHEN\TRAMADOL
  12. CALONAL [Concomitant]
     Active Substance: ACETAMINOPHEN
  13. ELIQUIS [Concomitant]
     Active Substance: APIXABAN
     Indication: Arrhythmia
  14. ACTONEL [Concomitant]
     Active Substance: RISEDRONATE SODIUM
     Indication: Prophylaxis
  15. PREDNISOLONE [Concomitant]
     Active Substance: PREDNISOLONE
     Dates: end: 20170204
  16. SULFAMETHOXAZOLE\TRIMETHOPRIM [Concomitant]
     Active Substance: SULFAMETHOXAZOLE\TRIMETHOPRIM
     Indication: Prophylaxis
  17. LOSARTAN [Concomitant]
     Active Substance: LOSARTAN
     Indication: Arrhythmia
  18. BERAPROST SODIUM [Concomitant]
     Active Substance: BERAPROST SODIUM
     Indication: Pulmonary arterial hypertension
  19. TRACLEER [Concomitant]
     Active Substance: BOSENTAN
     Indication: Pulmonary arterial hypertension
  20. SARPOGRELATE HYDROCHLORIDE [Concomitant]
     Active Substance: SARPOGRELATE HYDROCHLORIDE
  21. NEXIUM [Concomitant]
     Active Substance: ESOMEPRAZOLE MAGNESIUM
  22. PREDONINE [Concomitant]
     Active Substance: PREDNISOLONE
     Dates: start: 20170205, end: 20170314
  23. PREDONINE [Concomitant]
     Active Substance: PREDNISOLONE
     Dates: start: 20170315, end: 20170320
  24. PREDONINE [Concomitant]
     Active Substance: PREDNISOLONE
     Dates: start: 20170321, end: 20170327
  25. PREDONINE [Concomitant]
     Active Substance: PREDNISOLONE
     Dates: start: 20170328, end: 20170403
  26. PREDONINE [Concomitant]
     Active Substance: PREDNISOLONE
     Dates: start: 20170404

REACTIONS (1)
  - Pulmonary arterial hypertension [Fatal]

NARRATIVE: CASE EVENT DATE: 20201108
